FAERS Safety Report 8073840-8 (Version None)
Quarter: 2012Q1

REPORT INFORMATION
  Report Type: 
  Country: None (occurrence: None)
  Receive Date: 20120126
  Receipt Date: 20120123
  Transmission Date: 20120608
  Serious: No
  Sender: FDA-Public Use
  Company Number: US-PFIZER INC-2012009390

PATIENT
  Sex: Female
  Weight: 81.633 kg

DRUGS (6)
  1. LASIX [Concomitant]
     Indication: CARDIAC DISORDER
  2. CRESTOR [Suspect]
     Indication: BLOOD CHOLESTEROL INCREASED
     Dosage: UNK
  3. PLAVIX [Concomitant]
     Indication: CARDIAC DISORDER
     Dosage: 75 MG, DAILY
  4. LASIX [Concomitant]
     Indication: FLUID RETENTION
     Dosage: 10 MG, 2X/DAY
  5. LIPITOR [Suspect]
     Indication: BLOOD CHOLESTEROL INCREASED
     Dosage: 20 MG, DAILY
     Route: 048
     Dates: start: 20110101, end: 20110101
  6. TIAZAC [Concomitant]
     Dosage: 120 MG, DAILY

REACTIONS (4)
  - VOMITING [None]
  - DRUG HYPERSENSITIVITY [None]
  - NAUSEA [None]
  - BLOOD CHOLESTEROL INCREASED [None]
